FAERS Safety Report 8304577-5 (Version None)
Quarter: 2012Q2

REPORT INFORMATION
  Report Type: 
  Country: None (occurrence: None)
  Receive Date: 20120423
  Receipt Date: 20120411
  Transmission Date: 20120825
  Serious: Yes (Other)
  Sender: FDA-Public Use
  Company Number: FR-GLAXOSMITHKLINE-B0796761A

PATIENT
  Age: 14 Year
  Sex: Female

DRUGS (1)
  1. ALBUTEROL [Suspect]
     Route: 065

REACTIONS (3)
  - CHEMICAL INJURY [None]
  - THERMAL BURN [None]
  - INTENTIONAL DRUG MISUSE [None]
